FAERS Safety Report 9054258 (Version 1)
Quarter: 2013Q1

REPORT INFORMATION
  Report Type: Spontaneous
  Country: CN (occurrence: CN)
  Receive Date: 20130208
  Receipt Date: 20130208
  Transmission Date: 20140127
  Serious: Yes (Other)
  Sender: FDA-Public Use
  Company Number: CN-GLAXOSMITHKLINE-B0852863A

PATIENT
  Age: 77 None
  Sex: Male
  Weight: 47 kg

DRUGS (1)
  1. RELAFEN [Suspect]
     Indication: PAIN
     Dosage: .5G PER DAY
     Route: 048
     Dates: start: 20110508, end: 20110514

REACTIONS (2)
  - Upper gastrointestinal haemorrhage [Recovered/Resolved]
  - Diarrhoea [Recovered/Resolved]
